FAERS Safety Report 6443276-1 (Version None)
Quarter: 2009Q4

REPORT INFORMATION
  Report Type: 
  Country: None (occurrence: None)
  Receive Date: 20091113
  Receipt Date: 20091104
  Transmission Date: 20100525
  Serious: Yes (Death, Hospitalization)
  Sender: FDA-Public Use
  Company Number: 2009AC000356

PATIENT
  Age: 60 Year
  Sex: Male

DRUGS (1)
  1. DIGOXIN [Suspect]
     Dosage: UNKNOWN; UNK; PO
     Route: 048

REACTIONS (15)
  - CARDIAC ARREST [None]
  - DECREASED APPETITE [None]
  - DEPRESSED LEVEL OF CONSCIOUSNESS [None]
  - DIZZINESS [None]
  - DYSPNOEA [None]
  - ECONOMIC PROBLEM [None]
  - FALL [None]
  - FATIGUE [None]
  - HEADACHE [None]
  - INJURY [None]
  - MENTAL DISORDER [None]
  - MYDRIASIS [None]
  - PAIN [None]
  - THERAPEUTIC AGENT TOXICITY [None]
  - VENTRICULAR FIBRILLATION [None]
